FAERS Safety Report 7848752 (Version 3)
Quarter: 2014Q1

REPORT INFORMATION
  Report Type: Spontaneous
  Country: US (occurrence: US)
  Receive Date: 20110309
  Receipt Date: 20140207
  Transmission Date: 20141002
  Serious: No
  Sender: FDA-Public Use
  Company Number: US-B.I. PHARMACEUTICALS,INC./RIDGEFIELD-2011-BP-05695BP

PATIENT
  Age: 80 Year
  Sex: Female
  Weight: 94.8 kg

DRUGS (26)
  1. PRADAXA [Suspect]
     Indication: ATRIAL FIBRILLATION
     Dosage: 75 MG
     Route: 048
     Dates: start: 2010
  2. PRADAXA [Suspect]
     Dosage: 150 MG
     Route: 048
     Dates: start: 20110210, end: 20110505
  3. METHIMAZOLE [Concomitant]
     Indication: HYPOTHYROIDISM
     Dosage: DAILY DOSE: 1/2 TAB WED,SUN
     Route: 048
  4. PRILOSEC [Concomitant]
     Indication: DYSPEPSIA
     Dosage: 20 MG
     Route: 048
  5. POTASSIUM [Concomitant]
     Indication: PROPHYLAXIS
     Dosage: 4 ANZ
     Route: 048
  6. BISOPROLOL [Concomitant]
     Indication: HYPERTENSION
     Dosage: 20 MG
     Route: 048
  7. CLARITIN [Concomitant]
     Indication: SEASONAL ALLERGY
     Dosage: EVERYDAY AT BEDTIME
     Route: 048
  8. COQ-10 [Concomitant]
     Indication: PROPHYLAXIS
  9. ASPIRIN [Concomitant]
     Indication: PROPHYLAXIS
     Dosage: 81 MG
     Route: 048
  10. MULTAQ [Concomitant]
     Indication: ATRIAL FIBRILLATION
     Dosage: 1/2 TAB QD
  11. SINGULAIR [Concomitant]
     Indication: SEASONAL ALLERGY
     Dosage: 10 MG
     Route: 048
  12. CITRACAL [Concomitant]
     Indication: PROPHYLAXIS
     Dosage: 400 MG
  13. LASIX [Concomitant]
     Indication: PROPHYLAXIS
     Dosage: 40 MG
     Route: 048
  14. MAGNESIUM [Concomitant]
     Indication: PROPHYLAXIS
  15. ALPRAZOLAM [Concomitant]
  16. XOPENEX [Concomitant]
  17. ADVAIR DISKUS INHALATION MISCELLANEOUS [Concomitant]
     Dosage: DOSE PER APPLICATION AND DAILY DOSE: 100-50 MCG/DOSE
     Route: 055
  18. FLONASE [Concomitant]
     Dosage: FORMULATION: NASAL SUSPENSION, DOSE PER APPLICATION AND DAILY DOSE: 50MCG/ACT
  19. MIRALAX [Concomitant]
     Dosage: 17 G
  20. NITROQUICK [Concomitant]
     Indication: CHEST PAIN
     Route: 060
  21. SPIRIVA HANDIHALER [Concomitant]
     Dosage: 18 MCG
  22. UBIQUINOL [Concomitant]
     Dosage: 200 MG
     Route: 048
  23. BUDESONIDE [Concomitant]
     Dosage: DOSE PER APPLICATION: 0.5MG/2ML
     Route: 055
  24. HYDROCODONE [Concomitant]
     Dosage: 7.5/750MG
  25. COUMADIN [Concomitant]
  26. MAG-OX [Concomitant]
     Dosage: 800 MG
     Route: 048

REACTIONS (9)
  - Muscle spasms [Not Recovered/Not Resolved]
  - Muscle spasms [Not Recovered/Not Resolved]
  - Epistaxis [Not Recovered/Not Resolved]
  - Haematochezia [Not Recovered/Not Resolved]
  - Arthritis [Not Recovered/Not Resolved]
  - Haematemesis [Not Recovered/Not Resolved]
  - Contusion [Not Recovered/Not Resolved]
  - Amnesia [Not Recovered/Not Resolved]
  - Epistaxis [Recovered/Resolved]
